FAERS Safety Report 8461640 (Version 5)
Quarter: 2014Q2

REPORT INFORMATION
  Report Type: Spontaneous
  Country: FR (occurrence: FR)
  Receive Date: 20120315
  Receipt Date: 20140410
  Transmission Date: 20141212
  Serious: Yes (Hospitalization, Other)
  Sender: FDA-Public Use
  Company Number: FR-PFIZER INC-2012064514

PATIENT
  Age: 67 Year
  Sex: Female
  Weight: 72 kg

DRUGS (9)
  1. EFFEXOR LP [Suspect]
     Indication: DEPRESSION
     Dosage: UNK
     Route: 048
     Dates: start: 20120201, end: 201202
  2. EFFEXOR LP [Suspect]
     Dosage: 7 MG, DAILY
     Route: 048
     Dates: start: 201202, end: 20120309
  3. EFFEXOR LP [Suspect]
     Dosage: UNK
     Route: 048
     Dates: start: 201203, end: 20120322
  4. PREVISCAN [Suspect]
     Dosage: UNK
     Dates: end: 201203
  5. PREVISCAN [Suspect]
     Dosage: 1.25 DF, 1X/DAY
  6. LERCAN [Concomitant]
     Dosage: UNK
  7. CARDENSIEL [Concomitant]
     Dosage: UNK
  8. HEMIGOXINE [Concomitant]
     Dosage: UNK
  9. LASILIX [Concomitant]
     Dosage: UNK

REACTIONS (19)
  - Acquired haemophilia [Recovered/Resolved with Sequelae]
  - Fall [Unknown]
  - Haematoma [Recovered/Resolved]
  - Red blood cell count decreased [Recovering/Resolving]
  - Anaemia [Recovered/Resolved]
  - Activated partial thromboplastin time prolonged [Unknown]
  - Anti factor VIII antibody positive [Unknown]
  - Sciatica [Unknown]
  - Renal cyst [Unknown]
  - Hepatic cyst [Unknown]
  - Biliary cyst [Unknown]
  - Spondylolisthesis [Unknown]
  - Spinal osteoarthritis [Unknown]
  - Intervertebral disc protrusion [Unknown]
  - Nerve root compression [Unknown]
  - Anticoagulation drug level above therapeutic [Unknown]
  - Blood pressure increased [Unknown]
  - Alpha 1 globulin increased [Unknown]
  - Weight decreased [Unknown]
